FAERS Safety Report 24667619 (Version 10)
Quarter: 2025Q3

REPORT INFORMATION
  Report Type: Spontaneous
  Country: US (occurrence: US)
  Receive Date: 20241126
  Receipt Date: 20250828
  Transmission Date: 20251021
  Serious: Yes (Disabling, Other)
  Sender: AMGEN
  Company Number: US-AMGEN-USASP2024230057

PATIENT
  Age: 61 Year
  Sex: Female

DRUGS (42)
  1. TEPEZZA [Suspect]
     Active Substance: TEPROTUMUMAB-TRBW
     Indication: Hyperthyroidism
     Dosage: UNK, Q3WK (FIRST HALF DOSE)
     Route: 040
     Dates: start: 20221019
  2. TEPEZZA [Suspect]
     Active Substance: TEPROTUMUMAB-TRBW
     Indication: Endocrine ophthalmopathy
     Dosage: 1020 MILLIGRAM, Q3WK (SECOND INFUSION)
     Route: 040
     Dates: start: 20221118
  3. TEPEZZA [Suspect]
     Active Substance: TEPROTUMUMAB-TRBW
     Indication: Graves^ disease
     Dosage: 1020 MILLIGRAM, Q3WK (THIRD INFUSION)
     Route: 040
     Dates: start: 20221209
  4. TEPEZZA [Suspect]
     Active Substance: TEPROTUMUMAB-TRBW
     Dosage: 1020 MILLIGRAM, Q3WK (FOURTH INFUSION)
     Route: 040
     Dates: start: 20221230
  5. TEPEZZA [Suspect]
     Active Substance: TEPROTUMUMAB-TRBW
     Dosage: 1000 MILLIGRAM, Q3WK (FIFTH INFUSION)
     Route: 040
     Dates: start: 20230120
  6. TEPEZZA [Suspect]
     Active Substance: TEPROTUMUMAB-TRBW
     Dosage: 980 MILLIGRAM, Q3WK (LAST INFUSION)
     Route: 040
     Dates: start: 20230324
  7. TEPEZZA [Suspect]
     Active Substance: TEPROTUMUMAB-TRBW
     Dosage: UNK (STRENGTH: 500 MG)
     Route: 040
     Dates: start: 20230406
  8. PERCOCET [Concomitant]
     Active Substance: ACETAMINOPHEN\OXYCODONE HYDROCHLORIDE
     Route: 048
     Dates: start: 20220202
  9. SYNTHROID [Concomitant]
     Active Substance: LEVOTHYROXINE SODIUM
     Dosage: 100 MICROGRAM, QD
     Route: 048
     Dates: start: 20220202
  10. SYNTHROID [Concomitant]
     Active Substance: LEVOTHYROXINE SODIUM
     Dosage: 88 MICROGRAM, QD
     Route: 065
     Dates: start: 20230720
  11. SYNTHROID [Concomitant]
     Active Substance: LEVOTHYROXINE SODIUM
     Dosage: 88 MICROGRAM, QD (DOSE DECREASED)
     Route: 048
     Dates: start: 20240508
  12. SYNTHROID [Concomitant]
     Active Substance: LEVOTHYROXINE SODIUM
     Dosage: 88 MICROGRAM, QD
     Route: 065
     Dates: start: 20240813
  13. SYNTHROID [Concomitant]
     Active Substance: LEVOTHYROXINE SODIUM
     Route: 065
     Dates: start: 20241219
  14. Artificial tears [Concomitant]
     Dosage: TID (1-2 DROPS IN AFFECTED EYE)
     Route: 047
     Dates: start: 20230119
  15. CALTRATE [Concomitant]
     Active Substance: CALCIUM CARBONATE
     Dosage: UNK, QD
     Route: 065
     Dates: start: 20230119
  16. VUITY [Concomitant]
     Active Substance: PILOCARPINE HYDROCHLORIDE
     Dosage: QD (1 DROP IN BOTH EYES)
     Route: 047
     Dates: start: 20230119
  17. VITAMINS [Concomitant]
     Active Substance: VITAMINS
     Dosage: UNK, QD
     Route: 065
     Dates: start: 20230406
  18. VITAMINS [Concomitant]
     Active Substance: VITAMINS
     Dosage: UNK (ONE TABLET)
     Dates: start: 20241219
  19. OXYCODONE [Concomitant]
     Active Substance: OXYCODONE
     Route: 065
     Dates: start: 20230406
  20. TYLENOL [Concomitant]
     Active Substance: ACETAMINOPHEN
     Route: 065
     Dates: start: 20230406
  21. VITAMIN D [Concomitant]
     Active Substance: VITAMIN D NOS
     Dosage: UNK, QD
     Route: 065
     Dates: start: 20230406
  22. VITAMIN D [Concomitant]
     Active Substance: VITAMIN D NOS
     Dosage: UNK
     Route: 065
     Dates: start: 20241219
  23. ZYRTEC [Concomitant]
     Active Substance: CETIRIZINE HYDROCHLORIDE
     Dosage: UNK, QD
     Route: 048
     Dates: start: 20220202
  24. ZYRTEC [Concomitant]
     Active Substance: CETIRIZINE HYDROCHLORIDE
     Dosage: UNK, QD
     Route: 048
     Dates: start: 20240508
  25. ZYRTEC [Concomitant]
     Active Substance: CETIRIZINE HYDROCHLORIDE
     Route: 065
     Dates: start: 20241219
  26. MAXITROL [Concomitant]
     Active Substance: DEXAMETHASONE\NEOMYCIN SULFATE\POLYMYXIN B SULFATE
     Dosage: 1 DROP, TID (STRENGTH: 3.5 MG/G-10,000 UNIT/G-0.1 PERCENT), IN RIGHT UPPER EYELID)
     Route: 047
     Dates: start: 20220202
  27. MAXITROL [Concomitant]
     Active Substance: DEXAMETHASONE\NEOMYCIN SULFATE\POLYMYXIN B SULFATE
     Dosage: 1 DROP, TID (STRENGTH: 3.5 MG/G-10,000 UNIT/G-0.1 PERCENT), IN RIGHT UPPER EYELID)
     Route: 047
     Dates: start: 20220707
  28. THYROID [Concomitant]
     Active Substance: LEVOTHYROXINE\LIOTHYRONINE
     Route: 065
     Dates: start: 20220202
  29. PHENYLEPHRINE [Concomitant]
     Active Substance: PHENYLEPHRINE
     Dosage: QD (INSTILLED TO THE RIGHT EYE)
     Route: 047
  30. VICODIN [Concomitant]
     Active Substance: ACETAMINOPHEN\HYDROCODONE BITARTRATE
     Indication: Pain
     Route: 048
  31. THERATEARS [Concomitant]
     Active Substance: CARBOXYMETHYLCELLULOSE SODIUM
     Indication: Dry eye
     Route: 065
  32. SELENIUM [Concomitant]
     Active Substance: SELENIUM
     Dosage: 100 MICROGRAM, QD
     Route: 065
  33. CALCIUM [Concomitant]
     Active Substance: CALCIUM
     Route: 048
  34. ERYTHROMYCIN [Concomitant]
     Active Substance: ERYTHROMYCIN
     Dates: start: 20230921
  35. UPNEEQ [Concomitant]
     Active Substance: OXYMETAZOLINE HYDROCHLORIDE
     Dosage: 1 DROP, QD (STRENGTH: 0.1 PERCENT)
     Route: 047
     Dates: start: 20230921
  36. VEVYE [Concomitant]
     Active Substance: CYCLOSPORINE
     Dosage: 1 DROP, BID (STRENGTH 0.1 PERCENT)
     Route: 047
     Dates: start: 20240919
  37. CYCLOBENZAPRINE [Concomitant]
     Active Substance: CYCLOBENZAPRINE
     Route: 065
     Dates: start: 20241219
  38. SYSTANE (HYPROMELLOSE 2910 (4000 MPA.S)) [Concomitant]
     Active Substance: HYPROMELLOSE 2910 (4000 MPA.S)
     Dosage: UNK UNK, TID ( ATS TID)
     Route: 047
  39. SYSTANE (HYPROMELLOSE 2910 (4000 MPA.S)) [Concomitant]
     Active Substance: HYPROMELLOSE 2910 (4000 MPA.S)
     Dosage: UNK, QHS (GEL ATS)
     Route: 047
  40. BOTOX [Concomitant]
     Active Substance: ONABOTULINUMTOXINA
  41. THERATEARS [Concomitant]
     Active Substance: CARBOXYMETHYLCELLULOSE SODIUM
  42. JEUVEAU [Concomitant]
     Active Substance: PRABOTULINUMTOXINA-XVFS

REACTIONS (16)
  - Deafness neurosensory [Recovering/Resolving]
  - Endocrine ophthalmopathy [Unknown]
  - Graves^ disease [Unknown]
  - Diarrhoea [Recovered/Resolved]
  - Headache [Recovered/Resolved]
  - Muscle spasms [Not Recovered/Not Resolved]
  - Drug ineffective [Unknown]
  - Blood glucose abnormal [Unknown]
  - Pruritus [Unknown]
  - Cerumen impaction [Unknown]
  - Pain [Unknown]
  - Emotional distress [Unknown]
  - Anxiety [Unknown]
  - Discomfort [Unknown]
  - Product use complaint [Unknown]
  - Ear discomfort [Unknown]

NARRATIVE: CASE EVENT DATE: 20220101
